FAERS Safety Report 5500267-2 (Version None)
Quarter: 2007Q4

REPORT INFORMATION
  Report Type: 
  Country: None (occurrence: None)
  Receive Date: 20071029
  Receipt Date: 20071015
  Transmission Date: 20080405
  Serious: Yes (Hospitalization)
  Sender: FDA-Public Use
  Company Number: US-ELI_LILLY_AND_COMPANY-US200710003678

PATIENT
  Sex: Female
  Weight: 63.492 kg

DRUGS (4)
  1. ZYPREXA [Suspect]
     Indication: PSYCHOTIC DISORDER
     Dosage: 10 MG, UNK
  2. ZYPREXA ZYDIS [Suspect]
     Indication: PSYCHOTIC DISORDER
     Dosage: 20 MG, DAILY (1/D)
     Dates: start: 20060801
  3. DEPAKOTE [Concomitant]
     Indication: AFFECTIVE DISORDER
  4. TEMAZEPAM [Concomitant]
     Indication: SLEEP DISORDER

REACTIONS (3)
  - BIPOLAR DISORDER [None]
  - BLOOD GLUCOSE INCREASED [None]
  - DIABETES MELLITUS [None]
